FAERS Safety Report 13141126 (Version 1)
Quarter: 2017Q1

REPORT INFORMATION
  Report Type: Spontaneous
  Country: US (occurrence: US)
  Receive Date: 20170123
  Receipt Date: 20170123
  Transmission Date: 20170428
  Serious: Yes (Death)
  Sender: FDA-Public Use
  Company Number: US-SHENZHEN TECHDOW PHARMACEUTICAL CO. LTD-US-2017TEC0000002

PATIENT
  Age: 80 Year
  Sex: Male

DRUGS (2)
  1. EPTIFIBATIDE. [Concomitant]
     Active Substance: EPTIFIBATIDE
     Indication: ACUTE MYOCARDIAL INFARCTION
     Dosage: UNK
  2. HEPARIN SODIUM INJECTION USP, PRESERVATIVE FREE [Suspect]
     Active Substance: HEPARIN SODIUM
     Indication: INTRA-AORTIC BALLOON PLACEMENT
     Dosage: UNK

REACTIONS (5)
  - Hypoxia [Fatal]
  - Pulmonary haemorrhage [Fatal]
  - Cardiac arrest [Fatal]
  - Mental status changes [Fatal]
  - Hypotension [Fatal]
